FAERS Safety Report 17225205 (Version 2)
Quarter: 2020Q1

REPORT INFORMATION
  Report Type: Report from Study
  Country: US (occurrence: US)
  Receive Date: 20200102
  Receipt Date: 20200107
  Transmission Date: 20200409
  Serious: Yes (Other)
  Sender: FDA-Public Use
  Company Number: US-SHIRE-US201944888

PATIENT
  Age: 61 Year
  Sex: Female
  Weight: 72.56 kg

DRUGS (2)
  1. PENTASA [Suspect]
     Active Substance: MESALAMINE
     Indication: COLITIS
     Dosage: 1000 MILLIGRAM, 3X/DAY:TID
     Route: 065
  2. PENTASA [Suspect]
     Active Substance: MESALAMINE
     Dosage: 500 MILLIGRAM, 3X/DAY:TID
     Route: 048
     Dates: start: 2013

REACTIONS (6)
  - Inappropriate schedule of product administration [Unknown]
  - Product dose omission [Not Recovered/Not Resolved]
  - Colitis ulcerative [Unknown]
  - Diarrhoea [Not Recovered/Not Resolved]
  - Off label use [Unknown]
  - Product availability issue [Unknown]

NARRATIVE: CASE EVENT DATE: 201912
